FAERS Safety Report 24650916 (Version 1)
Quarter: 2024Q4

REPORT INFORMATION
  Report Type: Spontaneous
  Country: GB (occurrence: GB)
  Receive Date: 20241122
  Receipt Date: 20241122
  Transmission Date: 20250115
  Serious: Yes (Other)
  Sender: TEVA
  Company Number: GB-MHRA-EMIS-1556-8b7d8240-e20e-45a7-8407-bcc1063b4a8e

PATIENT
  Age: 92 Year
  Sex: Female
  Weight: 64 kg

DRUGS (4)
  1. FAMOTIDINE [Suspect]
     Active Substance: FAMOTIDINE
     Indication: Product used for unknown indication
     Dosage: ONE TO BE TAKEN TWICE A DAY, DAILY DOSE: 2 DOSAGE FORM
     Route: 065
     Dates: start: 20240916
  2. SERTRALINE [Concomitant]
     Active Substance: SERTRALINE HYDROCHLORIDE
     Indication: Product used for unknown indication
     Dosage: TAKE ONE TABLET EACH DAY (TO REPLACE 50MG TABLETS),25MG TABLETS
     Route: 065
     Dates: start: 20241002
  3. MELATONIN [Concomitant]
     Active Substance: MELATONIN
     Indication: Product used for unknown indication
     Dosage: TAKE ONE NIGHT, DAILY DOSE: 1 DOSAGE FORM
     Route: 065
     Dates: start: 20241002
  4. TRIMETHOPRIM [Concomitant]
     Active Substance: TRIMETHOPRIM
     Indication: Product used for unknown indication
     Dosage: ONE TO BE TAKEN TWICE A DAY, DAILY DOSE: 2 DOSAGE FORM
     Route: 065
     Dates: start: 20241028

REACTIONS (1)
  - Depressed level of consciousness [Recovering/Resolving]
